FAERS Safety Report 24327123 (Version 1)
Quarter: 2024Q3

REPORT INFORMATION
  Report Type: Spontaneous
  Country: JP (occurrence: JP)
  Receive Date: 20240917
  Receipt Date: 20240917
  Transmission Date: 20241016
  Serious: Yes (Hospitalization, Other)
  Sender: BAYER
  Company Number: JP-BAYER-2024A129150

PATIENT
  Age: 7 Decade
  Sex: Female
  Weight: 50.4 kg

DRUGS (5)
  1. ADEMPAS [Suspect]
     Active Substance: RIOCIGUAT
     Indication: Pulmonary hypertension
     Dosage: 1 MG, TID
     Route: 048
  2. ASPIRIN [Suspect]
     Active Substance: ASPIRIN
     Dosage: 1 DF, QD
  3. AMLODIPINE [Concomitant]
     Active Substance: AMLODIPINE BESYLATE
     Dosage: 1 DF, QD
  4. SITAGLIPTIN [Concomitant]
     Active Substance: SITAGLIPTIN
     Dosage: 2 DF, QD
  5. METFORMIN HYDROCHLORIDE [Concomitant]
     Active Substance: METFORMIN HYDROCHLORIDE
     Dosage: 1 DF, TID

REACTIONS (7)
  - Pulmonary hypertension [None]
  - Cardiac failure congestive [None]
  - Pulmonary artery dilatation [None]
  - Oedema [None]
  - Left ventricular dilatation [None]
  - Increased ventricular preload [None]
  - Brain natriuretic peptide increased [None]
